FAERS Safety Report 8684066 (Version 3)
Quarter: 2013Q1

REPORT INFORMATION
  Report Type: Spontaneous
  Country: US (occurrence: US)
  Receive Date: 20120726
  Receipt Date: 20130115
  Transmission Date: 20140127
  Serious: Yes (Other)
  Sender: FDA-Public Use
  Company Number: PHEH2012US013684

PATIENT
  Age: 73 None
  Sex: Female
  Weight: 99.32 kg

DRUGS (6)
  1. RECLAST [Suspect]
     Indication: OSTEOPOROSIS
     Dosage: 5 MG, UNK
     Route: 042
     Dates: start: 201112
  2. RECLAST [Suspect]
     Dosage: 5 MG, UNK
     Route: 042
     Dates: start: 201212
  3. LISINOPRIL [Concomitant]
     Indication: CARDIAC DISORDER
     Dosage: UNK UKN, UNK
     Route: 048
  4. MULTI-VIT [Concomitant]
     Dosage: UNK UKN, UNK
     Route: 048
  5. SYNTHROID [Concomitant]
     Dosage: UNK UKN, UNK
     Route: 048
  6. VITADIN [Concomitant]
     Dosage: UNK UKN, UNK
     Route: 048

REACTIONS (7)
  - Spinal osteoarthritis [Unknown]
  - Intervertebral disc protrusion [Unknown]
  - Bone pain [Unknown]
  - Intervertebral disc space narrowing [Unknown]
  - Spondyloarthropathy [Unknown]
  - Neck pain [Not Recovered/Not Resolved]
  - Exostosis [Unknown]
